FAERS Safety Report 18156001 (Version 1)
Quarter: 2020Q3

REPORT INFORMATION
  Report Type: Spontaneous
  Country: US (occurrence: US)
  Receive Date: 20200817
  Receipt Date: 20200817
  Transmission Date: 20201103
  Serious: Yes (Other)
  Sender: FDA-Public Use
  Company Number: US-STRIDES ARCOLAB LIMITED-2020SP009363

PATIENT
  Age: 15 Year
  Sex: Male

DRUGS (1)
  1. OSELTAMIVIR [Suspect]
     Active Substance: OSELTAMIVIR
     Indication: INFLUENZA
     Dosage: 75 MILLIGRAM, BID
     Route: 048

REACTIONS (4)
  - Visual impairment [Recovered/Resolved]
  - Blindness [Recovered/Resolved]
  - Acute macular outer retinopathy [Recovered/Resolved]
  - Central vision loss [Recovered/Resolved]
